FAERS Safety Report 15826251 (Version 1)
Quarter: 2019Q1

REPORT INFORMATION
  Report Type: Report from Study
  Country: CH (occurrence: CH)
  Receive Date: 20190115
  Receipt Date: 20190115
  Transmission Date: 20190417
  Serious: Yes (Death, Hospitalization)
  Sender: FDA-Public Use
  Company Number: CH-PFIZER INC-2019017156

PATIENT
  Age: 39 Year
  Sex: Female
  Weight: 165 kg

DRUGS (2)
  1. LORLATINIB [Suspect]
     Active Substance: LORLATINIB
     Indication: LUNG CANCER METASTATIC
     Dosage: 100 MG, DAILY (DAILY 4 UNITS OF 25MG)
     Route: 048
     Dates: start: 20181022, end: 20181231
  2. FRAGMIN [Concomitant]
     Active Substance: DALTEPARIN SODIUM
     Indication: THROMBOSIS
     Dosage: 15000 IU, DAILY
     Route: 058
     Dates: start: 20181107

REACTIONS (10)
  - Pulmonary arterial hypertension [Fatal]
  - Nausea [Unknown]
  - Restlessness [Unknown]
  - Dyspnoea exertional [Unknown]
  - Right ventricular failure [Unknown]
  - Pleural effusion [Unknown]
  - Right ventricular dilatation [Unknown]
  - Asthenia [Unknown]
  - Cardiogenic shock [Unknown]
  - Cold sweat [Unknown]

NARRATIVE: CASE EVENT DATE: 20181231
